FAERS Safety Report 9806804 (Version 1)
Quarter: 2014Q1

REPORT INFORMATION
  Report Type: Spontaneous
  Country: US (occurrence: US)
  Receive Date: 20140109
  Receipt Date: 20140109
  Transmission Date: 20141002
  Serious: Yes (Disabling)
  Sender: FDA-Public Use
  Company Number: US-ABBVIE-13P-163-1176378-00

PATIENT
  Sex: Female
  Weight: 90.8 kg

DRUGS (10)
  1. VICODIN [Suspect]
     Indication: PAIN
  2. ADVIL [Suspect]
     Indication: PAIN
     Dates: start: 2000
  3. LYRICA [Suspect]
     Indication: FIBROMYALGIA
  4. LYRICA [Suspect]
     Indication: PAIN
  5. ADVAIR [Concomitant]
     Indication: ASTHMA
  6. COMBIVENT [Concomitant]
     Indication: ASTHMA
  7. CLONAZEPAM [Concomitant]
     Indication: MUSCLE SPASMS
  8. PROZAC [Concomitant]
     Indication: DEPRESSION
  9. ELAVIL [Concomitant]
     Indication: DEPRESSION
  10. SEROQUEL [Concomitant]
     Indication: DEPRESSION

REACTIONS (6)
  - Pain [Unknown]
  - Drug ineffective [Unknown]
  - Asthenia [Unknown]
  - Mobility decreased [Unknown]
  - Therapeutic response unexpected [Unknown]
  - Pain [Unknown]
